FAERS Safety Report 7722536-8 (Version None)
Quarter: 2011Q3

REPORT INFORMATION
  Report Type: 
  Country: None (occurrence: None)
  Receive Date: 20110831
  Receipt Date: 20110826
  Transmission Date: 20111222
  Serious: Yes (Other)
  Sender: FDA-Public Use
  Company Number: PHEH2011US02768

PATIENT

DRUGS (1)
  1. AFINITOR [Suspect]

REACTIONS (1)
  - BLOOD COUNT ABNORMAL [None]
